FAERS Safety Report 16492294 (Version 1)
Quarter: 2019Q2

REPORT INFORMATION
  Report Type: Spontaneous
  Country: US (occurrence: US)
  Receive Date: 20190628
  Receipt Date: 20190628
  Transmission Date: 20190711
  Serious: Yes (Hospitalization)
  Sender: FDA-Public Use
  Company Number: US-ELI_LILLY_AND_COMPANY-US201906012726

PATIENT
  Sex: Female

DRUGS (2)
  1. HUMALOG [Suspect]
     Active Substance: INSULIN LISPRO
     Indication: DIABETES MELLITUS INADEQUATE CONTROL
     Dosage: UNK, PRN
     Route: 058
  2. OXYCODONE [Suspect]
     Active Substance: OXYCODONE
     Indication: MEDICAL INDUCTION OF COMA
     Dosage: UNK, UNKNOWN
     Route: 065

REACTIONS (3)
  - Blood glucose decreased [Recovered/Resolved]
  - Blood glucose increased [Recovered/Resolved]
  - Hypersensitivity [Recovered/Resolved]
